FAERS Safety Report 7942719-1 (Version None)
Quarter: 2011Q4

REPORT INFORMATION
  Report Type: 
  Country: None (occurrence: None)
  Receive Date: 20111122
  Receipt Date: 20110617
  Transmission Date: 20120403
  Serious: Yes (Other)
  Sender: FDA-Public Use
  Company Number: PHHY2011US52923

PATIENT
  Age: 57 Year
  Sex: Female

DRUGS (5)
  1. GILENYA [Suspect]
     Indication: MULTIPLE SCLEROSIS
     Dosage: 0.5 MG, DAILY, ORAL
     Route: 048
     Dates: start: 20110608
  2. NEURONTIN [Concomitant]
  3. ALPRAZOLAM [Concomitant]
  4. LISINOPRIL AND HYDROCHLOROTHIAZIDE [Concomitant]
  5. HALLOBETASOL PROPIONATE [Concomitant]

REACTIONS (3)
  - SINUS ARRHYTHMIA [None]
  - SINUS BRADYCARDIA [None]
  - VENTRICULAR ARRHYTHMIA [None]
